FAERS Safety Report 16644635 (Version 5)
Quarter: 2020Q2

REPORT INFORMATION
  Report Type: Spontaneous
  Country: US (occurrence: US)
  Receive Date: 20190729
  Receipt Date: 20200625
  Transmission Date: 20200713
  Serious: Yes (Hospitalization)
  Sender: FDA-Public Use
  Company Number: US-SA-2019SA197660

PATIENT

DRUGS (2)
  1. DUPIXENT [Suspect]
     Active Substance: DUPILUMAB
     Indication: DERMATITIS ATOPIC
     Dosage: 300 MG, QOW
     Route: 058
     Dates: start: 20200212
  2. DUPIXENT [Suspect]
     Active Substance: DUPILUMAB
     Indication: DERMATITIS
     Dosage: 300 MG, QOW
     Route: 058
     Dates: start: 20190601

REACTIONS (11)
  - Oral herpes [Unknown]
  - Testicular swelling [Unknown]
  - Fatigue [Unknown]
  - Gout [Unknown]
  - Oropharyngeal pain [Unknown]
  - Folliculitis [Unknown]
  - Acne [Unknown]
  - Blepharospasm [Unknown]
  - Arthralgia [Unknown]
  - Oral pain [Unknown]
  - Hospitalisation [Unknown]

NARRATIVE: CASE EVENT DATE: 2019
